FAERS Safety Report 10593299 (Version 1)
Quarter: 2014Q4

REPORT INFORMATION
  Report Type: Spontaneous
  Country: US (occurrence: None)
  Receive Date: 20141118
  Receipt Date: 20141118
  Transmission Date: 20150529
  Serious: No
  Sender: FDA-Public Use
  Company Number: None

PATIENT
  Age: 65 Year
  Sex: Female
  Weight: 90.72 kg

DRUGS (11)
  1. IBUPROFEN. [Concomitant]
     Active Substance: IBUPROFEN
  2. TRAZODONE [Concomitant]
     Active Substance: TRAZODONE HYDROCHLORIDE
  3. SAPHRIS [Suspect]
     Active Substance: ASENAPINE MALEATE
     Indication: BIPOLAR DISORDER
     Dosage: 1 PILL BEDTIME UNDER THE TONGUE
     Route: 060
     Dates: start: 20140804, end: 20140929
  4. LAMOTRIGINE. [Concomitant]
     Active Substance: LAMOTRIGINE
  5. CHONOZEPH [Concomitant]
  6. VITAMIN D3 [Concomitant]
     Active Substance: CHOLECALCIFEROL
  7. LYRICA [Concomitant]
     Active Substance: PREGABALIN
  8. ABILIFY [Concomitant]
     Active Substance: ARIPIPRAZOLE
  9. MULTIVITAMIN [Concomitant]
     Active Substance: VITAMINS
  10. MAGNESIUM [Concomitant]
     Active Substance: MAGNESIUM
  11. SIMASTATIN [Concomitant]

REACTIONS (4)
  - Nervousness [None]
  - Mania [None]
  - Tremor [None]
  - Feeling abnormal [None]

NARRATIVE: CASE EVENT DATE: 20140911
